FAERS Safety Report 6817333-1 (Version None)
Quarter: 2010Q2

REPORT INFORMATION
  Report Type: 
  Country: None (occurrence: None)
  Receive Date: 20100630
  Receipt Date: 20100621
  Transmission Date: 20101027
  Serious: Yes (Other)
  Sender: FDA-Public Use
  Company Number: 007192

PATIENT
  Sex: Female
  Weight: 74 kg

DRUGS (9)
  1. ALPROSTADIL [Suspect]
     Indication: PERIPHERAL ISCHAEMIA
     Dosage: 40 UG BID INTRAVENOUS (NOT OTHERWISE SPECIFIED)
     Route: 042
     Dates: start: 20100211, end: 20100310
  2. PROMEDOL [Concomitant]
  3. DIPYRONE INJ [Concomitant]
  4. ALPRAZOLAM [Concomitant]
  5. ACTOVEGIN [Concomitant]
  6. ACTRAPID [Concomitant]
  7. INSULILN PROTAPHAN HUMAN [Concomitant]
  8. KETOROLAC TROMETHAMINE [Concomitant]
  9. PROTAPHANE [Concomitant]

REACTIONS (8)
  - ARTERIOSCLEROSIS OBLITERANS [None]
  - BURSITIS [None]
  - CARDIAC FAILURE [None]
  - DIABETES MELLITUS [None]
  - NECROSIS [None]
  - PAIN [None]
  - PERIPHERAL ISCHAEMIA [None]
  - PNEUMONIA [None]
